FAERS Safety Report 8196935-7 (Version None)
Quarter: 2012Q1

REPORT INFORMATION
  Report Type: 
  Country: None (occurrence: None)
  Receive Date: 20120309
  Receipt Date: 20120305
  Transmission Date: 20120608
  Serious: Yes (Death, Hospitalization)
  Sender: FDA-Public Use
  Company Number: US-CELGENEUS-163-C5013-11053380

PATIENT
  Sex: Male
  Weight: 49.9 kg

DRUGS (69)
  1. PREDNISONE [Suspect]
     Dosage: 5 MILLIGRAM
     Route: 048
     Dates: start: 20110517
  2. DOCETAXEL [Suspect]
     Indication: PROSTATE CANCER
     Dosage: 115 MILLIGRAM
     Route: 065
     Dates: start: 20110426
  3. VITAMIN D [Concomitant]
     Dosage: 50000 UNITS
     Route: 048
  4. MORPHINE SULFATE [Concomitant]
     Indication: PAIN
     Dosage: .5 MILLIGRAM
     Route: 041
     Dates: start: 20110602, end: 20110604
  5. NEXIUM [Concomitant]
     Dosage: 40 MILLIGRAM
     Dates: start: 20110607, end: 20110610
  6. ACETAMINOPHEN [Concomitant]
     Indication: PAIN
     Dosage: 650 MILLIGRAM
     Route: 048
     Dates: start: 20110601, end: 20110611
  7. METHYLPREDNISOLONE SODIUM SUCCINATE [Concomitant]
     Dosage: 4 MILLIGRAM
     Dates: start: 20110607, end: 20110608
  8. MORPHINE SULFATE [Concomitant]
     Indication: PAIN
     Dosage: 5 MILLIGRAM
     Route: 048
     Dates: start: 20110605, end: 20110608
  9. LENALIDOMIDE [Suspect]
     Dosage: 20 MILLIGRAM
     Route: 048
     Dates: start: 20110517, end: 20110523
  10. DOCETAXEL [Suspect]
     Dosage: 115 MILLIGRAM
     Route: 065
     Dates: start: 20110517, end: 20110517
  11. ONDANSETRON [Concomitant]
     Indication: NAUSEA
     Dosage: 8 MILLIGRAM
     Route: 048
     Dates: start: 20110426, end: 20110607
  12. METHADON HCL TAB [Concomitant]
     Dosage: 10 MILLIGRAM
     Route: 048
     Dates: start: 20110525, end: 20110530
  13. VANCOMYCIN [Concomitant]
     Dosage: 750 MILLIGRAM
     Route: 041
     Dates: start: 20110601, end: 20110610
  14. LEVOTHYROXINE SODIUM [Concomitant]
     Dosage: 25 MICROGRAM
     Route: 041
     Dates: start: 20110525, end: 20110526
  15. LENALIDOMIDE [Suspect]
     Indication: PROSTATE CANCER
     Dosage: 25 MILLIGRAM
     Route: 048
     Dates: start: 20110426
  16. ASPIRIN [Concomitant]
     Indication: THROMBOSIS PROPHYLAXIS
     Dosage: 81 MILLIGRAM
     Route: 048
     Dates: start: 20110426
  17. DEXAMETHASONE [Concomitant]
     Dosage: 8 MILLIGRAM
     Route: 048
     Dates: start: 20110426
  18. DILTIAZEM HYDROCHLORIDE [Concomitant]
     Dosage: 10 MILLIGRAM
     Route: 041
     Dates: start: 20110525, end: 20110525
  19. DILTIAZEM HYDROCHLORIDE [Concomitant]
     Dosage: 10 MILLIGRAM
     Route: 041
     Dates: start: 20110530, end: 20110530
  20. DILTIAZEM HYDROCHLORIDE [Concomitant]
     Dosage: 30MG-45MG-60MG
     Route: 048
     Dates: start: 20110529, end: 20110609
  21. PROCHLORPERAZINE [Concomitant]
     Dosage: 10 MILLIGRAM
     Route: 048
     Dates: start: 20110426
  22. METOPROLOL TARTRATE [Concomitant]
     Dosage: 37.5 MILLIGRAM
     Route: 048
     Dates: start: 20110610, end: 20110611
  23. LEVOTHYROXINE SODIUM [Concomitant]
     Dosage: 50 MICROGRAM
     Route: 048
     Dates: start: 20110527, end: 20110607
  24. BISACODYL [Concomitant]
     Dosage: 10 MILLIGRAM
     Route: 054
     Dates: start: 20110605, end: 20110605
  25. FAMOTIDINE [Concomitant]
     Dosage: 10 MILLIGRAM
     Route: 040
     Dates: start: 20110607, end: 20110608
  26. MAGNESIUM SULFATE [Concomitant]
     Dosage: 2 GRAM
     Dates: start: 20110526, end: 20110526
  27. MAGNESIUM SULFATE [Concomitant]
     Dosage: 4 GRAM
     Dates: start: 20110529, end: 20110529
  28. DICLOXACILLIN [Concomitant]
     Dosage: 500 MILLIGRAM
     Route: 048
     Dates: start: 20110426
  29. DILTIAZEM HYDROCHLORIDE [Concomitant]
     Dosage: 10 MILLIGRAM
     Route: 041
     Dates: start: 20110607, end: 20110607
  30. FUROSEMIDE [Concomitant]
     Dosage: 20 MILLIGRAM
     Route: 048
     Dates: start: 20110510
  31. FUROSEMIDE [Concomitant]
     Dosage: 20MG-40MG
     Route: 041
     Dates: start: 20110529, end: 20110529
  32. SODIUM PHOSPHATE [Concomitant]
     Dosage: 15 MILLIMOLE
     Route: 041
     Dates: start: 20110602, end: 20110602
  33. SODIUM POTASSIUM PHOSPHATE [Concomitant]
     Dosage: 2 PACKETS
     Route: 048
     Dates: start: 20110527, end: 20110527
  34. AMBIEN CR [Concomitant]
     Dosage: 12.5 MILLIGRAM
     Route: 048
  35. DILTIAZEM HYDROCHLORIDE [Concomitant]
     Dosage: 15 MILLIGRAM
     Route: 041
     Dates: start: 20110601, end: 20110601
  36. NEURONTIN [Concomitant]
     Dosage: 300 MILLIGRAM
     Route: 048
  37. MORPHINE SULFATE [Concomitant]
     Dosage: 7.5 MILLIGRAM
     Route: 048
     Dates: start: 20110608, end: 20110611
  38. MAGNESIUM SULFATE [Concomitant]
     Dosage: 2 GRAM
     Dates: start: 20110606, end: 20110606
  39. ONDANSETRON [Concomitant]
     Indication: VOMITING
     Dosage: 4 MILLIGRAM
     Route: 041
     Dates: start: 20110607, end: 20110611
  40. SENNA [Concomitant]
     Dosage: 2 TABLET
     Route: 048
     Dates: start: 20110605, end: 20110611
  41. SYNTHROID [Concomitant]
     Dosage: 50 MICROGRAM
     Route: 048
  42. VALIUM [Concomitant]
     Dosage: 5 MILLIGRAM
     Route: 048
  43. METOPROLOL TARTRATE [Concomitant]
     Dosage: 25 MILLIGRAM
     Route: 048
     Dates: start: 20110609, end: 20110610
  44. METOPROLOL TARTRATE [Concomitant]
     Dosage: 5 MILLIGRAM
     Route: 041
     Dates: start: 20110610, end: 20110610
  45. SANTYL [Concomitant]
     Dosage: 1 APPLICATION
     Route: 061
     Dates: start: 20110609, end: 20110611
  46. POLYETHYLENE GLYCOL [Concomitant]
     Indication: CONSTIPATION
     Dosage: 1 PACKET
     Route: 048
     Dates: start: 20110527, end: 20110610
  47. GABAPENTIN [Concomitant]
     Dosage: 300 MILLIGRAM
     Route: 048
     Dates: start: 20110525, end: 20110530
  48. POTASSIUM CHLORIDE [Concomitant]
     Dosage: 20 MILLIEQUIVALENTS
     Route: 041
     Dates: start: 20110526, end: 20110526
  49. SIMETHICONE [Concomitant]
     Dosage: 80 MILLIGRAM
     Route: 048
     Dates: start: 20110604, end: 20110604
  50. DILAUDID [Concomitant]
     Route: 065
  51. DILTIAZEM HYDROCHLORIDE [Concomitant]
     Indication: BLOOD PRESSURE
     Dosage: 30 MILLIGRAM
     Route: 048
     Dates: start: 20110525, end: 20110601
  52. DILTIAZEM HYDROCHLORIDE [Concomitant]
     Dosage: 120 MILLIGRAM
     Route: 048
     Dates: start: 20110527, end: 20110529
  53. FUROSEMIDE [Concomitant]
     Dosage: 20 MILLIGRAM
     Route: 041
     Dates: start: 20110607, end: 20110607
  54. MINERAL OIL [Concomitant]
     Route: 048
  55. PIPERACILLIN AND TAZOBACTAM [Concomitant]
     Dosage: 4.5 GRAM
     Route: 041
     Dates: start: 20110525, end: 20110611
  56. METOPROLOL TARTRATE [Concomitant]
     Dosage: 5 MILLIGRAM
     Route: 041
     Dates: start: 20110607, end: 20110608
  57. MORPHINE SULFATE [Concomitant]
     Dosage: 1 MILLIGRAM
     Route: 041
  58. DOCUSATE SODIUM [Concomitant]
     Dosage: 100 MILLIGRAM
     Route: 048
     Dates: start: 20110527, end: 20110529
  59. DOCUSATE SODIUM [Concomitant]
     Dosage: 100 MILLIGRAM
     Route: 048
     Dates: start: 20110605, end: 20110611
  60. XENADERM [Concomitant]
     Dosage: 1 APPLICATION
     Route: 061
     Dates: start: 20110609, end: 20110611
  61. POTASSIUM CHLORIDE [Concomitant]
     Dosage: 10 MILLIEQUIVALENTS
     Route: 041
     Dates: start: 20110526, end: 20110527
  62. PREDNISONE [Suspect]
     Indication: PROSTATE CANCER
     Dosage: 5 MILLIGRAM
     Route: 048
     Dates: start: 20110426
  63. MORPHINE SULFATE [Concomitant]
     Dosage: 1 MILLIGRAM
     Route: 041
     Dates: start: 20110604, end: 20110611
  64. NEXIUM [Concomitant]
     Dosage: 40 MILLIGRAM
     Route: 048
     Dates: start: 20110610, end: 20110611
  65. LEVOTHYROXINE SODIUM [Concomitant]
     Dosage: 25 MICROGRAM
     Route: 041
     Dates: start: 20110608, end: 20110608
  66. LEVOTHYROXINE SODIUM [Concomitant]
     Dosage: 50 MICROGRAM
     Route: 048
     Dates: start: 20110609, end: 20110611
  67. MAGNESIUM SULFATE [Concomitant]
     Dosage: 4 GRAM
     Dates: start: 20110603, end: 20110603
  68. SODIUM POTASSIUM PHOSPHATE [Concomitant]
     Dosage: 1 TABLET
     Route: 048
     Dates: start: 20110528, end: 20110528
  69. SODIUM POTASSIUM PHOSPHATE [Concomitant]
     Dosage: 1 TABLET
     Route: 048
     Dates: start: 20110603, end: 20110603

REACTIONS (2)
  - PROSTATE CANCER [None]
  - DEHYDRATION [None]
